FAERS Safety Report 8860261 (Version 1)
Quarter: 2012Q4

REPORT INFORMATION
  Report Type: 
  Country: CA (occurrence: CA)
  Receive Date: 20121025
  Receipt Date: 20121025
  Transmission Date: 20130627
  Serious: Yes (Other)
  Sender: FDA-Public Use
  Company Number: CA-AMGEN-CANSP2012067209

PATIENT
  Age: 67 Year
  Sex: Female

DRUGS (7)
  1. ENBREL [Suspect]
     Indication: RHEUMATOID ARTHRITIS
     Dosage: UNK
     Dates: start: 2007
  2. SYNTHROID [Concomitant]
     Dosage: UNK
  3. LOVENOX [Concomitant]
     Dosage: UNK
  4. DILAUDID [Concomitant]
     Dosage: UNK
  5. LYRICA [Concomitant]
     Dosage: UNK
  6. CELEBREX [Concomitant]
     Dosage: UNK
  7. AMLODIPINE [Concomitant]
     Dosage: UNK

REACTIONS (1)
  - Hip arthroplasty [Recovered/Resolved]
